FAERS Safety Report 16706900 (Version 1)
Quarter: 2019Q3

REPORT INFORMATION
  Report Type: Spontaneous
  Country: FR (occurrence: FR)
  Receive Date: 20190815
  Receipt Date: 20190815
  Transmission Date: 20191004
  Serious: Yes (Hospitalization)
  Sender: FDA-Public Use
  Company Number: FR-TEVA-2019-FR-1092637

PATIENT
  Age: 81 Year
  Sex: Female

DRUGS (11)
  1. SIMVASTATINE [Concomitant]
     Active Substance: SIMVASTATIN
  2. ELIQUIS [Concomitant]
     Active Substance: APIXABAN
  3. THIAMINE. [Concomitant]
     Active Substance: THIAMINE
  4. SPIRONOLACTONE. [Suspect]
     Active Substance: SPIRONOLACTONE
     Indication: HYPERTENSION
     Route: 065
  5. CITALOPRAM (CHLORHYDRATE DE) [Suspect]
     Active Substance: CITALOPRAM HYDROCHLORIDE
     Indication: PRODUCT USED FOR UNKNOWN INDICATION
     Route: 065
  6. AMLODIPINE [Concomitant]
     Active Substance: AMLODIPINE BESYLATE
  7. PANTOPRAZOLE [Suspect]
     Active Substance: PANTOPRAZOLE
     Indication: PRODUCT USED FOR UNKNOWN INDICATION
     Route: 065
  8. FUROSEMIDE. [Suspect]
     Active Substance: FUROSEMIDE
     Indication: HYPERTENSION
     Route: 065
  9. RAMIPRIL. [Suspect]
     Active Substance: RAMIPRIL
     Indication: HYPERTENSION
     Route: 065
  10. PYRIDOXINE [Concomitant]
     Active Substance: PYRIDOXINE
  11. BISOPROLOL (FUMARATE DE) [Concomitant]
     Active Substance: BISOPROLOL FUMARATE

REACTIONS (3)
  - Dehydration [Recovered/Resolved]
  - Hyponatraemia [Recovered/Resolved]
  - Asthenia [Recovering/Resolving]

NARRATIVE: CASE EVENT DATE: 20190704
